FAERS Safety Report 6279346-0 (Version None)
Quarter: 2009Q3

REPORT INFORMATION
  Report Type: 
  Country: None (occurrence: None)
  Receive Date: 20090723
  Receipt Date: 20081113
  Transmission Date: 20100115
  Serious: No
  Sender: FDA-Public Use
  Company Number: US-AMGEN-KDL319611

PATIENT
  Sex: Male
  Weight: 78.1 kg

DRUGS (5)
  1. PROCRIT [Suspect]
     Indication: DRUG USE FOR UNKNOWN INDICATION
  2. GLYBURIDE [Concomitant]
  3. ACTOS [Concomitant]
  4. VYTORIN [Concomitant]
  5. UNSPECIFIED ANTIDIABETIC AGENT [Concomitant]

REACTIONS (1)
  - DIARRHOEA [None]
